FAERS Safety Report 9099348 (Version 1)
Quarter: 2013Q1

REPORT INFORMATION
  Report Type: Spontaneous
  Country: US (occurrence: US)
  Receive Date: 20130214
  Receipt Date: 20130214
  Transmission Date: 20140127
  Serious: No
  Sender: FDA-Public Use
  Company Number: US-COVIDIEN/TYCO HEALTHCARE/MALLINCKRODT-T201204254

PATIENT
  Age: 54 Year
  Sex: Female
  Weight: 46.71 kg

DRUGS (10)
  1. FENTANYL TRANSDERMAL SYSTEM [Suspect]
     Indication: PAIN
     Dosage: 25 MCG/HR, Q 48 HRS
     Route: 062
     Dates: start: 20121203
  2. FENTANYL [Concomitant]
     Dosage: UNK
  3. LORTAB                             /00607101/ [Concomitant]
     Indication: PAIN
     Dosage: 10/500 MG Q 4-6 HR
     Route: 048
  4. LASIX                              /00032601/ [Concomitant]
     Dosage: UNK
  5. ASA [Concomitant]
     Dosage: UNK
  6. K-DUR [Concomitant]
     Dosage: UNK
  7. XANAX [Concomitant]
     Indication: ANXIETY
     Dosage: UNK
  8. PRILOSEC                           /00661201/ [Concomitant]
     Indication: GASTROOESOPHAGEAL REFLUX DISEASE
     Dosage: UNK
  9. MULTIVITAMIN                       /00097801/ [Concomitant]
     Dosage: UNK
  10. AMBIEN [Concomitant]
     Indication: INSOMNIA
     Dosage: UNK

REACTIONS (4)
  - Flushing [Not Recovered/Not Resolved]
  - Chills [Not Recovered/Not Resolved]
  - Influenza like illness [Not Recovered/Not Resolved]
  - Drug ineffective [Not Recovered/Not Resolved]
